FAERS Safety Report 5637401-X (Version None)
Quarter: 2008Q1

REPORT INFORMATION
  Report Type: 
  Country: None (occurrence: None)
  Receive Date: 20080225
  Receipt Date: 20080219
  Transmission Date: 20080703
  Serious: Yes (Other)
  Sender: FDA-Public Use
  Company Number: JP-AVENTIS-200713317JP

PATIENT
  Age: 0 Day
  Weight: 2.96 kg

DRUGS (2)
  1. LANTUS [Suspect]
     Route: 064
     Dates: start: 20060101
  2. QUICK ACTING INSULIN [Concomitant]

REACTIONS (2)
  - DRUG EXPOSURE DURING PREGNANCY [None]
  - OESOPHAGEAL ATRESIA [None]
